FAERS Safety Report 12250037 (Version 2)
Quarter: 2016Q2

REPORT INFORMATION
  Report Type: Report from Study
  Country: US (occurrence: US)
  Receive Date: 20160408
  Receipt Date: 20160516
  Transmission Date: 20160815
  Serious: Yes (Hospitalization, Other)
  Sender: FDA-Public Use
  Company Number: ADR-2015-01484

PATIENT
  Age: 42 Year
  Sex: Female

DRUGS (9)
  1. BACLOFEN. [Suspect]
     Active Substance: BACLOFEN
     Dosage: 45.54 MCG/DAY
     Route: 037
     Dates: start: 20111010
  2. MORPHINE IR. [Concomitant]
  3. DILAUDID [Suspect]
     Active Substance: HYDROMORPHONE HYDROCHLORIDE
     Dosage: 0.2189 MG/DAY
     Route: 037
     Dates: start: 20110908
  4. MORPHINE [Suspect]
     Active Substance: MORPHINE
     Dosage: 0.625 MG/DAY
     Route: 037
     Dates: start: 20110505
  5. MORPHINE [Suspect]
     Active Substance: MORPHINE
     Dosage: 1.250 MG/DAY
     Route: 037
  6. BACLOFEN. [Suspect]
     Active Substance: BACLOFEN
     Dosage: 35.02 MCG/DAY
     Route: 038
     Dates: start: 20110908
  7. BACLOFEN. [Suspect]
     Active Substance: BACLOFEN
     Route: 037
  8. BACLOFEN. [Suspect]
     Active Substance: BACLOFEN
     Route: 037
     Dates: start: 20110505
  9. DILAUDID [Suspect]
     Active Substance: HYDROMORPHONE HYDROCHLORIDE
     Dosage: 0.2847 MG/DAY
     Route: 037
     Dates: start: 20111010

REACTIONS (4)
  - Asthenia [Recovered/Resolved]
  - Adverse drug reaction [Recovered/Resolved]
  - Hypoaesthesia [Recovered/Resolved]
  - Paraesthesia [Recovered/Resolved]

NARRATIVE: CASE EVENT DATE: 20110505
